FAERS Safety Report 9846639 (Version 1)
Quarter: 2014Q1

REPORT INFORMATION
  Report Type: Spontaneous
  Country: US (occurrence: None)
  Receive Date: 20140123
  Receipt Date: 20140123
  Transmission Date: 20141002
  Serious: Yes (Other)
  Sender: FDA-Public Use
  Company Number: None

PATIENT
  Age: 51 Year
  Sex: Male

DRUGS (1)
  1. VANCOMYCIN [Suspect]
     Route: 042

REACTIONS (5)
  - Cough [None]
  - Erythema [None]
  - Nausea [None]
  - Hyperhidrosis [None]
  - Feeling hot [None]
